FAERS Safety Report 15200718 (Version 1)
Quarter: 2018Q3

REPORT INFORMATION
  Report Type: Spontaneous
  Country: US (occurrence: US)
  Receive Date: 20180726
  Receipt Date: 20180726
  Transmission Date: 20181010
  Serious: No
  Sender: FDA-Public Use
  Company Number: US-SUN PHARMACEUTICAL INDUSTRIES LTD-2017US-154205

PATIENT
  Sex: Male

DRUGS (1)
  1. TESTOSTERONE. [Suspect]
     Active Substance: TESTOSTERONE
     Indication: BLOOD TESTOSTERONE DECREASED
     Dosage: 0.5 ML, 1/WEEK
     Route: 065
     Dates: start: 2017

REACTIONS (4)
  - Wrong technique in product usage process [Unknown]
  - Drug level increased [Unknown]
  - Product physical issue [Unknown]
  - Drug dose omission [Unknown]
